FAERS Safety Report 18448204 (Version 1)
Quarter: 2020Q4

REPORT INFORMATION
  Report Type: Other
  Country: KR (occurrence: KR)
  Receive Date: 20201031
  Receipt Date: 20201031
  Transmission Date: 20210114
  Serious: Yes (Hospitalization, Other)
  Sender: FDA-Public Use
  Company Number: KR-AJANTA PHARMA USA INC.-2093478

PATIENT
  Age: 69 Year
  Sex: Male

DRUGS (8)
  1. VORICONAZOLE. [Suspect]
     Active Substance: VORICONAZOLE
     Indication: BRONCHOPULMONARY ASPERGILLOSIS
     Route: 048
  2. GLIMEPIRIDE. [Concomitant]
     Active Substance: GLIMEPIRIDE
  3. MANIDIPINE [Suspect]
     Active Substance: MANIDIPINE
  4. TELMISARTAN. [Concomitant]
     Active Substance: TELMISARTAN
  5. DRONEDARONE [Suspect]
     Active Substance: DRONEDARONE
  6. SPIRONOLACTONE. [Concomitant]
     Active Substance: SPIRONOLACTONE
  7. METFORMIN [Concomitant]
     Active Substance: METFORMIN HYDROCHLORIDE
  8. AMLODIPINE [Concomitant]
     Active Substance: AMLODIPINE BESYLATE

REACTIONS (12)
  - Dysarthria [Recovered/Resolved]
  - Atrioventricular block [Recovered/Resolved]
  - Drug interaction [Recovered/Resolved]
  - Proteinuria [Recovered/Resolved]
  - Light chain disease [Recovered/Resolved]
  - Atrial fibrillation [Recovered/Resolved]
  - Bradyarrhythmia [Recovered/Resolved]
  - Quadriparesis [Recovered/Resolved]
  - Hyperkalaemia [Recovered/Resolved]
  - Bundle branch block left [Recovered/Resolved]
  - Hypercalcaemia [Recovered/Resolved]
  - Haemoptysis [Recovered/Resolved]
